FAERS Safety Report 7793734-2 (Version None)
Quarter: 2011Q4

REPORT INFORMATION
  Report Type: 
  Country: None (occurrence: None)
  Receive Date: 20111003
  Receipt Date: 20110927
  Transmission Date: 20120403
  Serious: Yes (Death, Hospitalization)
  Sender: FDA-Public Use
  Company Number: FR-MERCK-1103FRA00094

PATIENT
  Age: 82 Year
  Sex: Female

DRUGS (7)
  1. EMTRICITABINE AND TENOFOVIR DISOPROXIL FUMARATE [Concomitant]
     Indication: HIV INFECTION
     Route: 048
     Dates: end: 20110319
  2. CYCLOPHOSPHAMIDE [Concomitant]
     Indication: NON-HODGKIN'S LYMPHOMA
     Route: 042
     Dates: start: 20110308, end: 20110308
  3. PREDNISONE [Concomitant]
     Indication: NON-HODGKIN'S LYMPHOMA
     Route: 048
     Dates: start: 20110308, end: 20110312
  4. OLANZAPINE [Concomitant]
     Route: 048
     Dates: start: 20091210, end: 20110325
  5. ISENTRESS [Suspect]
     Indication: HIV INFECTION
     Route: 048
     Dates: start: 20100503, end: 20110319
  6. RITUXIMAB [Concomitant]
     Indication: NON-HODGKIN'S LYMPHOMA
     Route: 042
     Dates: start: 20030307, end: 20110307
  7. VINCRISTINE SULFATE [Concomitant]
     Indication: NON-HODGKIN'S LYMPHOMA
     Route: 065
     Dates: start: 20110308, end: 20110308

REACTIONS (5)
  - NON-HODGKIN'S LYMPHOMA [None]
  - FUNGAL TEST POSITIVE [None]
  - CANDIDA SEPSIS [None]
  - FALL [None]
  - SEPTIC SHOCK [None]
